FAERS Safety Report 4718741-5 (Version None)
Quarter: 2005Q3

REPORT INFORMATION
  Report Type: 
  Country: None (occurrence: None)
  Receive Date: 20050719
  Receipt Date: 20050705
  Transmission Date: 20060218
  Serious: Yes (Other)
  Sender: FDA-Public Use
  Company Number: 2005081285

PATIENT
  Sex: Male

DRUGS (3)
  1. LIPITOR [Suspect]
     Indication: ILL-DEFINED DISORDER
  2. CELEBREX [Suspect]
     Indication: ILL-DEFINED DISORDER
     Dosage: (AS NECESSARY)
  3. BEXTRA [Suspect]
     Indication: ILL-DEFINED DISORDER

REACTIONS (3)
  - FOOT OPERATION [None]
  - RASH [None]
  - TRIPLE VESSEL BYPASS GRAFT [None]
